FAERS Safety Report 16077275 (Version 1)
Quarter: 2019Q1

REPORT INFORMATION
  Report Type: Spontaneous
  Country: US (occurrence: US)
  Receive Date: 20190314
  Receipt Date: 20190314
  Transmission Date: 20190418
  Serious: Yes (Other)
  Sender: FDA-Public Use
  Company Number: None

PATIENT
  Age: 56 Year
  Sex: Female

DRUGS (1)
  1. HURRICAINE TOPICAL ANESTHETIC [Suspect]
     Active Substance: BENZOCAINE
     Indication: ECHOCARDIOGRAM
     Dates: start: 20190303, end: 20190305

REACTIONS (3)
  - Methaemoglobinaemia [None]
  - Blood pressure decreased [None]
  - Procedural complication [None]

NARRATIVE: CASE EVENT DATE: 20190305
